FAERS Safety Report 9588660 (Version 1)
Quarter: 2013Q4

REPORT INFORMATION
  Report Type: Spontaneous
  Country: US (occurrence: US)
  Receive Date: 20131003
  Receipt Date: 20131003
  Transmission Date: 20140711
  Serious: No
  Sender: FDA-Public Use
  Company Number: US-AMGEN-USASP2012064781

PATIENT
  Age: 39 Year
  Sex: Male

DRUGS (4)
  1. ENBREL [Suspect]
     Indication: PRODUCT USED FOR UNKNOWN INDICATION
     Dosage: 50 MG, QWK
     Route: 058
  2. HUMIRA [Concomitant]
     Dosage: 40MG/0.8
  3. TEGRETOL [Concomitant]
     Dosage: 200 MG, UNK
  4. OXYCODONE [Concomitant]
     Dosage: 5 MG, UNK

REACTIONS (1)
  - Pneumonia [Unknown]
